FAERS Safety Report 7353559-9 (Version None)
Quarter: 2011Q1

REPORT INFORMATION
  Report Type: 
  Country: None (occurrence: None)
  Receive Date: 20110315
  Receipt Date: 20110310
  Transmission Date: 20110831
  Serious: Yes (Death)
  Sender: FDA-Public Use
  Company Number: GB-NAPPMUNDI-GBR-2010-0007034

PATIENT
  Sex: Male

DRUGS (7)
  1. CO CODAMOL [Concomitant]
     Indication: ARTHRALGIA
     Dosage: UNK
     Route: 048
  2. VALSARTAN [Concomitant]
  3. DOXAZOSIN [Concomitant]
  4. PARACETAMOL [Concomitant]
  5. BUTRANS TRANSDERMAL PATCH [Suspect]
     Indication: ARTHRALGIA
     Dosage: 10 MCG, Q1H
     Route: 062
  6. BUTRANS TRANSDERMAL PATCH [Suspect]
     Dosage: 5 MCG, Q1H
     Route: 062
     Dates: start: 20100201
  7. EZETIMIBE [Concomitant]

REACTIONS (2)
  - COMPLETED SUICIDE [None]
  - ADVERSE DRUG REACTION [None]
